FAERS Safety Report 19078278 (Version 2)
Quarter: 2021Q4

REPORT INFORMATION
  Report Type: Spontaneous
  Country: US (occurrence: US)
  Receive Date: 20210331
  Receipt Date: 20211207
  Transmission Date: 20220303
  Serious: Yes (Other)
  Sender: FDA-Public Use
  Company Number: US-PFIZER INC-2020405836

PATIENT
  Sex: Female
  Weight: 69.841 kg

DRUGS (18)
  1. PREVACID 24 HR [Suspect]
     Active Substance: LANSOPRAZOLE
     Indication: Gastrooesophageal reflux disease
     Dosage: UNK
     Route: 048
     Dates: start: 2009, end: 201812
  2. PREVACID 24 HR [Suspect]
     Active Substance: LANSOPRAZOLE
     Indication: Dyspepsia
  3. NEXIUM [Suspect]
     Active Substance: ESOMEPRAZOLE MAGNESIUM
     Indication: Gastrooesophageal reflux disease
     Dosage: 40 MG, QD
     Route: 048
     Dates: start: 200103, end: 201812
  4. NEXIUM [Suspect]
     Active Substance: ESOMEPRAZOLE MAGNESIUM
     Indication: Dyspepsia
  5. NEXIUM 24HR [Suspect]
     Active Substance: ESOMEPRAZOLE MAGNESIUM
     Indication: Gastrooesophageal reflux disease
     Dosage: UNK, UNK
     Route: 065
     Dates: start: 2014, end: 2018
  6. NEXIUM 24HR [Suspect]
     Active Substance: ESOMEPRAZOLE MAGNESIUM
     Indication: Dyspepsia
  7. PREVACID [Suspect]
     Active Substance: LANSOPRAZOLE
     Indication: Gastrooesophageal reflux disease
     Dosage: 40 MG, QD
     Route: 065
     Dates: start: 1995, end: 201812
  8. PREVACID [Suspect]
     Active Substance: LANSOPRAZOLE
     Indication: Dyspepsia
  9. PANTOPRAZOLE SODIUM [Suspect]
     Active Substance: PANTOPRAZOLE SODIUM
     Indication: Gastrooesophageal reflux disease
     Dosage: 40 MG, QD
     Route: 048
     Dates: start: 20140325, end: 20191008
  10. PANTOPRAZOLE SODIUM [Suspect]
     Active Substance: PANTOPRAZOLE SODIUM
     Indication: Dyspepsia
     Dosage: 40 MG, BID
     Route: 065
  11. DEXILANT [Suspect]
     Active Substance: DEXLANSOPRAZOLE
     Indication: Gastrooesophageal reflux disease
     Dosage: 60 MG, QD
     Route: 048
     Dates: start: 2009, end: 201812
  12. DEXILANT [Suspect]
     Active Substance: DEXLANSOPRAZOLE
     Indication: Dyspepsia
  13. PRILOSEC [Suspect]
     Active Substance: OMEPRAZOLE MAGNESIUM
     Indication: Gastrooesophageal reflux disease
     Dosage: 40 MG, QD
     Route: 065
     Dates: start: 1989, end: 2018
  14. PRILOSEC [Suspect]
     Active Substance: OMEPRAZOLE MAGNESIUM
     Indication: Dyspepsia
  15. PROTONIX [Suspect]
     Active Substance: PANTOPRAZOLE SODIUM
     Indication: Gastrooesophageal reflux disease
     Dosage: 40 MG, QD
     Route: 065
     Dates: start: 2000, end: 2018
  16. PROTONIX [Suspect]
     Active Substance: PANTOPRAZOLE SODIUM
     Indication: Dyspepsia
  17. OMEPRAZOLE [Suspect]
     Active Substance: OMEPRAZOLE
     Indication: Gastrooesophageal reflux disease
     Dosage: 40 MG, QD
     Route: 065
     Dates: start: 2001, end: 2018
  18. OMEPRAZOLE [Suspect]
     Active Substance: OMEPRAZOLE
     Indication: Dyspepsia

REACTIONS (16)
  - Chronic kidney disease [Not Recovered/Not Resolved]
  - Acute kidney injury [Not Recovered/Not Resolved]
  - Nephrolithiasis [Unknown]
  - Hydroureter [Unknown]
  - Urinary tract obstruction [Unknown]
  - Hydronephrosis [Unknown]
  - Renal atrophy [Unknown]
  - Renal impairment [Unknown]
  - Nephrogenic anaemia [Unknown]
  - Dialysis [Not Recovered/Not Resolved]
  - Ureterolithiasis [Unknown]
  - Ureteral stent insertion [Unknown]
  - Nephropathy [Unknown]
  - Pollakiuria [Unknown]
  - Nocturia [Unknown]
  - Essential hypertension [Unknown]

NARRATIVE: CASE EVENT DATE: 20160101
